FAERS Safety Report 9748160 (Version 3)
Quarter: 2014Q1

REPORT INFORMATION
  Report Type: Spontaneous
  Country: US (occurrence: US)
  Receive Date: 20131212
  Receipt Date: 20140210
  Transmission Date: 20141002
  Serious: No
  Sender: FDA-Public Use
  Company Number: US-PFIZER INC-2013354136

PATIENT
  Age: 62 Year
  Sex: Female
  Weight: 67.57 kg

DRUGS (7)
  1. LYRICA [Suspect]
     Indication: SCIATICA
     Dosage: 75 MG, 2X/DAY
     Route: 048
     Dates: start: 2013
  2. LYRICA [Suspect]
     Indication: SPINAL COMPRESSION FRACTURE
     Dosage: 50 MG THREE TIMES IN A DAY, THEN WAS INCREASED TO 75 MG THREE TIMES A DAY
  3. CELEBREX [Concomitant]
     Indication: ARTHRITIS
     Dosage: 200 MG, 2X/DAY
  4. PREDNISONE [Concomitant]
     Indication: ARTHRITIS
     Dosage: 5 MG, DAILY
  5. ENBREL [Concomitant]
     Indication: ARTHRITIS
     Dosage: 50 MG, WEEKLY
  6. FORTEO [Concomitant]
     Indication: BONE FORMATION DECREASED
     Dosage: UNK, DAILY
  7. PERCOCET [Concomitant]
     Indication: PAIN
     Dosage: UNK, AS NEEDED

REACTIONS (1)
  - Drug ineffective for unapproved indication [Unknown]
